FAERS Safety Report 9965385 (Version 1)
Quarter: 2014Q1

REPORT INFORMATION
  Report Type: Report from Study
  Country: US (occurrence: US)
  Receive Date: 20140305
  Receipt Date: 20140305
  Transmission Date: 20141002
  Serious: No
  Sender: FDA-Public Use
  Company Number: US-ABBVIE-13P-163-1126570-00

PATIENT
  Age: 19 Year
  Sex: Male

DRUGS (2)
  1. HUMIRA [Suspect]
     Indication: PSORIASIS
     Dates: start: 20130301
  2. HALOBETASOL [Concomitant]
     Indication: PSORIASIS
     Dosage: 2 TIMES A DAY AS NEEDED

REACTIONS (2)
  - Drug effect incomplete [Recovering/Resolving]
  - Injection site pain [Recovering/Resolving]
